FAERS Safety Report 9032976 (Version 1)
Quarter: 2013Q1

REPORT INFORMATION
  Report Type: Spontaneous
  Country: GB (occurrence: None)
  Receive Date: 20130110
  Receipt Date: 20130110
  Transmission Date: 20140127
  Serious: Yes (Life-Threatening)
  Sender: FDA-Public Use
  Company Number: 1550750

PATIENT
  Age: 65 Year
  Sex: Male

DRUGS (6)
  1. GENTAMICIN SULFATE [Suspect]
     Indication: POSTOPERATIVE CARE
  2. ATRACURIUM BESILATE [Suspect]
     Indication: INDUCTION OF ANAESTHESIA
     Route: 042
  3. FLUCLOXACILLIN [Suspect]
     Indication: POSTOPERATIVE CARE
     Route: 042
  4. FENTANYL [Suspect]
     Indication: INDUCTION OF ANAESTHESIA
     Route: 042
  5. PROPOFOL [Suspect]
     Indication: INDUCTION OF ANAESTHESIA
     Route: 042
  6. CHLORHEXIDINE [Suspect]

REACTIONS (1)
  - Anaphylactic reaction [None]
